FAERS Safety Report 7488782-6 (Version None)
Quarter: 2011Q2

REPORT INFORMATION
  Report Type: 
  Country: None (occurrence: None)
  Receive Date: 20110518
  Receipt Date: 20110510
  Transmission Date: 20111010
  Serious: Yes (Other)
  Sender: FDA-Public Use
  Company Number: US-PFIZER INC-2011101123

PATIENT
  Sex: Male
  Weight: 81.633 kg

DRUGS (5)
  1. LIPITOR [Concomitant]
     Indication: BLOOD CHOLESTEROL ABNORMAL
     Dosage: 10 MG, 1X/DAY
     Route: 048
  2. ZOLOFT [Suspect]
     Dosage: 50 MG, DAILY
  3. VALIUM [Concomitant]
     Indication: NERVOUS SYSTEM DISORDER
     Dosage: 20 MG, 2X/DAY
     Route: 048
  4. ZOLOFT [Suspect]
     Indication: DEPRESSION
     Dosage: 100 MG, DAILY
     Route: 048
     Dates: end: 20060101
  5. NORCO [Concomitant]
     Indication: BACK DISORDER
     Dosage: 10/350 MG, AS NEEDED
     Route: 048

REACTIONS (2)
  - BRONCHITIS CHRONIC [None]
  - CHRONIC OBSTRUCTIVE PULMONARY DISEASE [None]
